FAERS Safety Report 4646253-6 (Version None)
Quarter: 2005Q2

REPORT INFORMATION
  Report Type: 
  Country: None (occurrence: None)
  Receive Date: 20050422
  Receipt Date: 20050407
  Transmission Date: 20051028
  Serious: Yes (Other)
  Sender: FDA-Public Use
  Company Number: 2005-DE-01339GD

PATIENT
  Sex: 0

DRUGS (10)
  1. MORPHINE [Suspect]
     Indication: POSTOPERATIVE ANALGESIA
     Dosage: PATIENT-CONTROLLED ANALGESIA WITH BOLUS OF 1 MG WITH A LOCKOUT INTERVAL OF 5 MIN
  2. TRAMADOL HCL [Suspect]
     Indication: POSTOPERATIVE ANALGESIA
     Dosage: BOLUSES
  3. FENTANYL [Suspect]
     Indication: ANAESTHESIA
     Dosage: 5 MCG/KG, ADDITIONAL FOR UP TO 15 MCG
  4. ETOMIDATE (ETOMIDATE) [Concomitant]
  5. PANCURONIUM (PANCURONIUM) [Concomitant]
  6. ISOFLURANE [Concomitant]
  7. TRANEXAMIC ACID (TRANEXAMIC ACID) [Concomitant]
  8. HEPARIN [Concomitant]
  9. PROTAMINE SULFATE [Concomitant]
  10. PROPOFOL [Concomitant]

REACTIONS (1)
  - DRUG EFFECT DECREASED [None]
